FAERS Safety Report 6532917-6 (Version None)
Quarter: 2010Q1

REPORT INFORMATION
  Report Type: 
  Country: None (occurrence: None)
  Receive Date: 20100111
  Receipt Date: 20100104
  Transmission Date: 20100710
  Serious: Yes (Hospitalization, Other)
  Sender: FDA-Public Use
  Company Number: US-AMGEN-QUU378594

PATIENT
  Sex: Male
  Weight: 75.8 kg

DRUGS (1)
  1. ENBREL [Suspect]
     Indication: ANKYLOSING SPONDYLITIS
     Route: 058
     Dates: start: 20060316

REACTIONS (7)
  - ANGLE CLOSURE GLAUCOMA [None]
  - CATARACT [None]
  - DERMATITIS [None]
  - INFLUENZA [None]
  - JOINT SWELLING [None]
  - MENTAL DISORDER [None]
  - OEDEMA PERIPHERAL [None]
